FAERS Safety Report 8443785-X (Version None)
Quarter: 2012Q2

REPORT INFORMATION
  Report Type: 
  Country: None (occurrence: None)
  Receive Date: 20120618
  Receipt Date: 20120611
  Transmission Date: 20120825
  Serious: Yes (Hospitalization)
  Sender: FDA-Public Use
  Company Number: CA-US-EMD SERONO, INC.-7133569

PATIENT
  Sex: Female

DRUGS (13)
  1. BACLOFEN [Concomitant]
     Indication: PRODUCT USED FOR UNKNOWN INDICATION
  2. REBIF [Suspect]
     Indication: PRODUCT USED FOR UNKNOWN INDICATION
     Route: 058
     Dates: start: 20120511
  3. METFORMIN HCL [Concomitant]
     Indication: DIABETES MELLITUS
  4. GLYBURIDE [Concomitant]
     Indication: DIABETES MELLITUS
  5. OLMESARTAN MEDOXOMIL [Concomitant]
     Indication: PRODUCT USED FOR UNKNOWN INDICATION
  6. CHLOROTHIAZIDE [Concomitant]
     Indication: DIURETIC THERAPY
  7. RABEPRAZOLE SODIUM [Concomitant]
     Indication: ULCER
  8. CRESTOR [Concomitant]
     Indication: CARDIAC DISORDER
  9. ASPIRIN [Concomitant]
     Indication: PRODUCT USED FOR UNKNOWN INDICATION
  10. CLOPIDOGREL [Concomitant]
     Indication: ANTICOAGULANT THERAPY
  11. TRAZODONE HCL [Concomitant]
     Indication: ANTIDEPRESSANT THERAPY
  12. MORPHINE [Concomitant]
     Indication: PRODUCT USED FOR UNKNOWN INDICATION
  13. NIACIN [Concomitant]
     Indication: PRODUCT USED FOR UNKNOWN INDICATION

REACTIONS (9)
  - INFLUENZA LIKE ILLNESS [None]
  - DIARRHOEA [None]
  - MALAISE [None]
  - SYNCOPE [None]
  - HOT FLUSH [None]
  - BLOOD GLUCOSE DECREASED [None]
  - VOMITING [None]
  - WEIGHT DECREASED [None]
  - DIZZINESS [None]
